FAERS Safety Report 5002247-2 (Version None)
Quarter: 2006Q2

REPORT INFORMATION
  Report Type: 
  Country: None (occurrence: None)
  Receive Date: 20060515
  Receipt Date: 20060505
  Transmission Date: 20061013
  Serious: Yes (Other)
  Sender: FDA-Public Use
  Company Number: PHEH2006US05987

PATIENT
  Age: 41 Year
  Sex: Female

DRUGS (2)
  1. TRILEPTAL [Suspect]
     Indication: NEUROPATHY PERIPHERAL
     Dosage: 1200 MG, QD
     Route: 048
     Dates: start: 20051201
  2. TRILEPTAL [Suspect]
     Dosage: 900 MG, QD
     Route: 048

REACTIONS (7)
  - CRYING [None]
  - DEPRESSION [None]
  - DIPLOPIA [None]
  - DIZZINESS [None]
  - DRUG INEFFECTIVE [None]
  - HOT FLUSH [None]
  - NAUSEA [None]
